FAERS Safety Report 4655913-2 (Version None)
Quarter: 2005Q2

REPORT INFORMATION
  Report Type: 
  Country: None (occurrence: None)
  Receive Date: 20050506
  Receipt Date: 20050506
  Transmission Date: 20051028
  Serious: Yes (Death)
  Sender: FDA-Public Use
  Company Number: None

PATIENT
  Sex: Male
  Weight: 90.7194 kg

DRUGS (4)
  1. RISPERDAL [Suspect]
     Indication: SCHIZOPHRENIA, PARANOID TYPE
     Dosage: 25MG  Q 2WKS INTRAMUSCULAR
     Route: 030
     Dates: start: 20050404, end: 20050418
  2. PAROXETINE 40MG GENERIC [Suspect]
     Indication: PSYCHOTIC DISORDER
     Dosage: 40MG  1 HS ORAL
     Route: 048
     Dates: start: 20021001, end: 20050418
  3. DEPAKOTE [Concomitant]
  4. BENZTROPINE [Concomitant]

REACTIONS (1)
  - SUDDEN DEATH [None]
